FAERS Safety Report 6780085-8 (Version None)
Quarter: 2010Q2

REPORT INFORMATION
  Report Type: 
  Country: None (occurrence: None)
  Receive Date: 20100618
  Receipt Date: 20100603
  Transmission Date: 20101027
  Serious: No
  Sender: FDA-Public Use
  Company Number: US-TEVA-237559USA

PATIENT
  Sex: Female
  Weight: 108.96 kg

DRUGS (1)
  1. SALBUTAMOL SULFATE INHALATION, 0.09 MG [Suspect]
     Indication: ASTHMA
     Dates: start: 20100513, end: 20100523

REACTIONS (2)
  - ORAL DISCOMFORT [None]
  - THROAT IRRITATION [None]
